FAERS Safety Report 6443073-7 (Version None)
Quarter: 2009Q4

REPORT INFORMATION
  Report Type: 
  Country: None (occurrence: None)
  Receive Date: 20091117
  Receipt Date: 20090701
  Transmission Date: 20100525
  Serious: Yes (Hospitalization, Other)
  Sender: FDA-Public Use
  Company Number: PHHY2009FR17638

PATIENT
  Age: 34 Month
  Sex: Male

DRUGS (2)
  1. ZADITEN [Suspect]
     Indication: RHINITIS ALLERGIC
     Dosage: 1MG/5ML
     Route: 048
     Dates: start: 20090402
  2. ZADITEN [Suspect]
     Dosage: HALF A BOTTLE
     Route: 048
     Dates: start: 20090430

REACTIONS (2)
  - ACCIDENTAL OVERDOSE [None]
  - GASTRIC LAVAGE [None]
